FAERS Safety Report 7874876-X (Version None)
Quarter: 2011Q4

REPORT INFORMATION
  Report Type: 
  Country: None (occurrence: None)
  Receive Date: 20111031
  Receipt Date: 20111019
  Transmission Date: 20120403
  Serious: Yes (Hospitalization)
  Sender: FDA-Public Use
  Company Number: US-BAYER-201040972NA

PATIENT
  Age: 36 Year
  Sex: Female
  Weight: 112 kg

DRUGS (12)
  1. FLAGYL [Concomitant]
  2. NPH INSULIN [Concomitant]
  3. ZESTRIL [Concomitant]
  4. SIMVASTATIN [Concomitant]
     Indication: BLOOD CHOLESTEROL INCREASED
     Dosage: UNK
     Dates: start: 20070101
  5. PERCOCET [Concomitant]
  6. YASMIN [Suspect]
     Indication: ORAL CONTRACEPTION
     Route: 048
     Dates: start: 20021201, end: 20080101
  7. CIPROFLOXACIN [Concomitant]
  8. HYDROCHLOROTHIAZIDE [Concomitant]
  9. CLONIDINE [Concomitant]
  10. ZOCOR [Concomitant]
  11. AMARYL [Concomitant]
  12. LISINOPRIL [Concomitant]
     Indication: HYPERTENSION
     Dosage: UNK
     Dates: start: 20070101

REACTIONS (3)
  - ABDOMINAL PAIN [None]
  - CHOLELITHIASIS [None]
  - CHOLECYSTITIS CHRONIC [None]
